FAERS Safety Report 16701415 (Version 1)
Quarter: 2019Q3

REPORT INFORMATION
  Report Type: Spontaneous
  Country: US (occurrence: US)
  Receive Date: 20190814
  Receipt Date: 20190814
  Transmission Date: 20191004
  Serious: Yes (Other)
  Sender: FDA-Public Use
  Company Number: US-ACCORD-150062

PATIENT
  Age: 33 Year
  Sex: Female

DRUGS (3)
  1. CETUXIMAB. [Suspect]
     Active Substance: CETUXIMAB
     Indication: NASOPHARYNGEAL CANCER
     Dosage: 400 MG/M2 INITIAL DOSE, 250 MG/?M2 SUBSEQUENT DOSES EVERY 7-14 DAYS
  2. DOCETAXEL. [Suspect]
     Active Substance: DOCETAXEL
     Indication: NASOPHARYNGEAL CANCER
     Dosage: EVERY 7-14 DAYS
  3. CISPLATIN. [Suspect]
     Active Substance: CISPLATIN
     Indication: NASOPHARYNGEAL CANCER
     Dosage: EVERY 7-14 DAYS

REACTIONS (3)
  - Dermatitis [Recovered/Resolved]
  - Lacrimation increased [Recovered/Resolved]
  - Periorbital disorder [Recovering/Resolving]
